FAERS Safety Report 16590954 (Version 3)
Quarter: 2019Q3

REPORT INFORMATION
  Report Type: Spontaneous
  Country: BR (occurrence: BR)
  Receive Date: 20190718
  Receipt Date: 20190925
  Transmission Date: 20191004
  Serious: Yes (Other)
  Sender: FDA-Public Use
  Company Number: BR-PFIZER INC-2019300870

PATIENT
  Age: 51 Year
  Sex: Male

DRUGS (3)
  1. SUTENT [Suspect]
     Active Substance: SUNITINIB MALATE
     Dosage: UNK
  2. SUTENT [Suspect]
     Active Substance: SUNITINIB MALATE
     Dosage: UNK
     Dates: start: 20190725
  3. SUTENT [Suspect]
     Active Substance: SUNITINIB MALATE
     Dosage: UNK
     Dates: start: 201905

REACTIONS (35)
  - Lung infection [Unknown]
  - Brain hypoxia [Unknown]
  - Balance disorder [Unknown]
  - Skin discolouration [Unknown]
  - Confusional state [Unknown]
  - Dysphonia [Not Recovered/Not Resolved]
  - Pain [Unknown]
  - Polyuria [Unknown]
  - Myocardial infarction [Unknown]
  - Gingival pain [Unknown]
  - Skin wound [Unknown]
  - Anxiety [Not Recovered/Not Resolved]
  - Fatigue [Unknown]
  - Taste disorder [Unknown]
  - Productive cough [Unknown]
  - Pruritus [Unknown]
  - Swelling [Unknown]
  - Seizure [Unknown]
  - Fall [Unknown]
  - Neoplasm progression [Unknown]
  - Diabetes mellitus [Unknown]
  - Muscular weakness [Unknown]
  - Oral disorder [Unknown]
  - Bone disorder [Unknown]
  - Dizziness [Unknown]
  - Asthenia [Unknown]
  - Yellow skin [Not Recovered/Not Resolved]
  - Head discomfort [Unknown]
  - Feeling cold [Unknown]
  - Toothache [Unknown]
  - Headache [Not Recovered/Not Resolved]
  - Irritability [Unknown]
  - Gait disturbance [Unknown]
  - Abdominal hernia [Unknown]
  - Bone pain [Unknown]
